FAERS Safety Report 16045327 (Version 1)
Quarter: 2019Q1

REPORT INFORMATION
  Report Type: Spontaneous
  Country: IT (occurrence: IT)
  Receive Date: 20190307
  Receipt Date: 20190307
  Transmission Date: 20190418
  Serious: Yes (Other)
  Sender: FDA-Public Use
  Company Number: IT-AUROBINDO-AUR-APL-2019-011656

PATIENT

DRUGS (13)
  1. PHENOBARBITAL. [Suspect]
     Active Substance: PHENOBARBITAL
     Indication: PARTIAL SEIZURES
     Dosage: UNKNOWN DOSE
     Route: 065
  2. CANNABIDIOL [Concomitant]
     Active Substance: CANNABIDIOL
     Indication: PRODUCT USED FOR UNKNOWN INDICATION
     Dosage: 15 MILLIGRAM/KILOGRAM, DAILY (15 MG/KG/DAY)
     Route: 065
  3. CORTICOTROPIN [Concomitant]
     Active Substance: CORTICOTROPIN
     Indication: EPILEPSY
     Dosage: UNKNOWN DOSE
     Route: 065
  4. CLONAZEPAM. [Concomitant]
     Active Substance: CLONAZEPAM
     Indication: EPILEPSY
     Dosage: UNKNOWN DAYS
     Route: 065
  5. LAMOTRIGINE. [Concomitant]
     Active Substance: LAMOTRIGINE
     Indication: EPILEPSY
     Dosage: UNKNOWN DAYS
     Route: 065
  6. QUINIDINE [Concomitant]
     Active Substance: QUINIDINE
     Indication: PARTIAL SEIZURES
     Dosage: 232 MILLIGRAM/KILOGRAM, DAILY (58 MG/KG, 4X/DAY (QID))
     Route: 065
  7. VALPROIC ACID. [Concomitant]
     Active Substance: VALPROIC ACID
     Indication: EPILEPSY
     Dosage: UNKNOWN DOSE
     Route: 065
  8. PYRIDOXINE [Suspect]
     Active Substance: PYRIDOXINE
     Indication: PARTIAL SEIZURES
     Dosage: UNKNWON DOSE
     Route: 065
  9. NITRAZEPAM [Concomitant]
     Active Substance: NITRAZEPAM
     Indication: EPILEPSY
     Dosage: UNKNOWN DOSE
     Route: 065
  10. VIGABATRIN. [Concomitant]
     Active Substance: VIGABATRIN
     Indication: EPILEPSY
     Dosage: UNKNOWN DAYS
     Route: 065
  11. LEVETIRACETAM. [Suspect]
     Active Substance: LEVETIRACETAM
     Indication: PARTIAL SEIZURES
     Dosage: UNKNOWN DOSE
     Route: 065
  12. CARBAMAZEPINE. [Suspect]
     Active Substance: CARBAMAZEPINE
     Indication: PARTIAL SEIZURES
     Dosage: UNKNOWN DOSE
     Route: 065
  13. PHENYTOIN. [Suspect]
     Active Substance: PHENYTOIN
     Indication: PARTIAL SEIZURES
     Dosage: UNKNWON DOSE
     Route: 065

REACTIONS (3)
  - Multiple-drug resistance [Unknown]
  - Off label use [Unknown]
  - Seizure [Recovering/Resolving]
